FAERS Safety Report 17652918 (Version 6)
Quarter: 2021Q2

REPORT INFORMATION
  Report Type: Spontaneous
  Country: US (occurrence: US)
  Receive Date: 20200409
  Receipt Date: 20210506
  Transmission Date: 20210716
  Serious: No
  Sender: FDA-Public Use
  Company Number: US-BIOGEN-2020BI00860949

PATIENT
  Sex: Female

DRUGS (2)
  1. PLEGRIDY [Suspect]
     Active Substance: PEGINTERFERON BETA-1A
     Route: 065
     Dates: start: 202102
  2. PLEGRIDY [Suspect]
     Active Substance: PEGINTERFERON BETA-1A
     Indication: MULTIPLE SCLEROSIS
     Route: 065
     Dates: start: 20200217

REACTIONS (9)
  - Multiple sclerosis [Unknown]
  - Dizziness [Unknown]
  - Balance disorder [Unknown]
  - Muscular weakness [Unknown]
  - Stress [Unknown]
  - Injection site pain [Unknown]
  - Nausea [Unknown]
  - Hypertension [Unknown]
  - Headache [Unknown]
